FAERS Safety Report 23129304 (Version 1)
Quarter: 2023Q4

REPORT INFORMATION
  Report Type: Spontaneous
  Country: CN (occurrence: CN)
  Receive Date: 20231031
  Receipt Date: 20231031
  Transmission Date: 20240110
  Serious: Yes (Other)
  Sender: FDA-Public Use
  Company Number: CN-DSJP-DSJ-2023-144342

PATIENT
  Age: 51 Year
  Sex: Female

DRUGS (3)
  1. ENHERTU [Suspect]
     Active Substance: FAM-TRASTUZUMAB DERUXTECAN-NXKI
     Indication: Neoplasm malignant
     Dosage: 300 MG, ONCE EVERY 3 WK
     Route: 041
     Dates: start: 20230927, end: 20230927
  2. WATER [Suspect]
     Active Substance: WATER
     Indication: Medication dilution
     Dosage: 20 ML, ONCE EVERY 3 WK (21 DAY)
     Route: 041
     Dates: start: 20230927, end: 20230927
  3. DEXTROSE [Suspect]
     Active Substance: DEXTROSE\DEXTROSE MONOHYDRATE
     Indication: Prophylaxis
     Dosage: 100 ML, ONCE EVERY 3 WK
     Route: 041
     Dates: start: 20230927, end: 20230927

REACTIONS (10)
  - Myelosuppression [Recovering/Resolving]
  - Somnolence [Recovering/Resolving]
  - Asthenia [Recovering/Resolving]
  - Fatigue [Recovering/Resolving]
  - Decreased appetite [Recovering/Resolving]
  - Constipation [Recovering/Resolving]
  - Nausea [Recovering/Resolving]
  - Vomiting [Recovering/Resolving]
  - Platelet count decreased [Recovering/Resolving]
  - White blood cell count decreased [Recovering/Resolving]

NARRATIVE: CASE EVENT DATE: 20231016
